FAERS Safety Report 9882373 (Version 2)
Quarter: 2014Q1

REPORT INFORMATION
  Report Type: Spontaneous
  Country: JP (occurrence: JP)
  Receive Date: 20140207
  Receipt Date: 20140224
  Transmission Date: 20141002
  Serious: Yes (Hospitalization)
  Sender: FDA-Public Use
  Company Number: JP-GLAXOSMITHKLINE-B0966049A

PATIENT
  Age: 38 Year
  Sex: Female

DRUGS (5)
  1. VOTRIENT 200MG [Suspect]
     Indication: SOFT TISSUE CANCER
     Dosage: 800MG PER DAY
     Route: 048
     Dates: start: 20140121, end: 20140127
  2. TRAMCET [Concomitant]
     Indication: MUSCULOSKELETAL CHEST PAIN
     Dosage: 1IUAX FOUR TIMES PER DAY
     Route: 048
     Dates: start: 20130903, end: 20140127
  3. GASTER D [Concomitant]
     Indication: GASTRITIS PROPHYLAXIS
     Dosage: 1IUAX TWICE PER DAY
     Route: 048
     Dates: start: 20130903, end: 20140127
  4. NOVAMINE [Concomitant]
     Indication: PROPHYLAXIS OF NAUSEA AND VOMITING
     Dosage: 5MG THREE TIMES PER DAY
     Route: 048
     Dates: start: 20130903, end: 20140127
  5. ZYPREXA [Concomitant]
     Indication: PROPHYLAXIS OF NAUSEA AND VOMITING
     Dosage: 1IUAX PER DAY
     Route: 048
     Dates: start: 20131025, end: 20140127

REACTIONS (8)
  - Ascites [Unknown]
  - Diarrhoea [Recovered/Resolved]
  - Hepatic function abnormal [Recovered/Resolved]
  - Vomiting [Unknown]
  - Abdominal pain [Unknown]
  - Intestinal mucosal hypertrophy [Unknown]
  - Gastrointestinal inflammation [Recovered/Resolved]
  - Pyrexia [Unknown]
